FAERS Safety Report 20625474 (Version 1)
Quarter: 2022Q1

REPORT INFORMATION
  Report Type: Spontaneous
  Country: NL (occurrence: NL)
  Receive Date: 20220323
  Receipt Date: 20220323
  Transmission Date: 20220423
  Serious: Yes (Life-Threatening)
  Sender: FDA-Public Use
  Company Number: None

PATIENT
  Age: 49 Year
  Sex: Female
  Weight: 57 kg

DRUGS (2)
  1. METHOTREXATE [Suspect]
     Active Substance: METHOTREXATE
     Indication: Rheumatoid arthritis
     Dosage: 20MG 1X/WEEK,METHOTREXATE TABLET 2.5MG / BRAND NAME NOT SPECIFIED
     Dates: start: 20181205, end: 20220207
  2. FOLIC ACID [Concomitant]
     Active Substance: FOLIC ACID
     Dosage: ,FOLIC ACID TABLET 5MG / BRAND NAME NOT SPECIFIED,?THERAPY START DATE AND END DATE : ASKU
     Route: 065

REACTIONS (1)
  - Diffuse large B-cell lymphoma stage IV [Not Recovered/Not Resolved]

NARRATIVE: CASE EVENT DATE: 20220110
